FAERS Safety Report 9374973 (Version 2)
Quarter: 2013Q3

REPORT INFORMATION
  Report Type: Report from Study
  Country: DE (occurrence: DE)
  Receive Date: 20130628
  Receipt Date: 20130709
  Transmission Date: 20140515
  Serious: Yes (Hospitalization)
  Sender: FDA-Public Use
  Company Number: DE-TEVA-414187ISR

PATIENT
  Age: 66 Year
  Sex: Female

DRUGS (6)
  1. PACLITAXEL [Suspect]
     Indication: OVARIAN CANCER
     Dosage: 291 MILLIGRAM DAILY; DATE OF LAST DOSE PRIOR TO 1 ST EPISODE: 30-APR-2013
     Route: 042
     Dates: start: 20130226
  2. PACLITAXEL [Suspect]
     Dosage: 286 MILLIGRAM DAILY;
     Route: 042
     Dates: start: 20130604, end: 20130611
  3. CARBOPLATIN [Suspect]
     Indication: OVARIAN CANCER
     Dosage: 770 MILLIGRAM DAILY; DATE OF LAST DOSE PRIOR TO 1ST EPISODE: 30-APR-2013
     Route: 042
     Dates: start: 20130226
  4. CARBOPLATIN [Suspect]
     Dosage: 745 MILLIGRAM DAILY;
     Route: 042
     Dates: start: 20130604, end: 20130611
  5. BEVACIZUMAB [Suspect]
     Indication: OVARIAN CANCER
     Dosage: 872 MILLIGRAM DAILY; DATE OF LAST DOSE PRIOR TO 1ST EPISODE: 30-APR-2013
     Route: 042
     Dates: start: 20130319
  6. BEVACIZUMAB [Suspect]
     Dosage: 860 MILLIGRAM DAILY;
     Route: 042
     Dates: start: 20130604, end: 20130611

REACTIONS (1)
  - Female genital tract fistula [Not Recovered/Not Resolved]
